FAERS Safety Report 5833209-0 (Version None)
Quarter: 2008Q3

REPORT INFORMATION
  Report Type: 
  Country: None (occurrence: None)
  Receive Date: 20080731
  Receipt Date: 20080716
  Transmission Date: 20090109
  Serious: Yes (Death, Life-Threatening)
  Sender: FDA-Public Use
  Company Number: 2008AL003411

PATIENT
  Age: 86 Year
  Sex: Male
  Weight: 70.7611 kg

DRUGS (1)
  1. DIGOXIN [Suspect]
     Indication: HEART RATE IRREGULAR
     Dosage: 0.125MG, DAILY, PO
     Route: 048

REACTIONS (5)
  - DIZZINESS [None]
  - DYSSTASIA [None]
  - FALL [None]
  - MYOCARDIAL INFARCTION [None]
  - SUDDEN DEATH [None]
